FAERS Safety Report 25441262 (Version 1)
Quarter: 2025Q2

REPORT INFORMATION
  Report Type: Spontaneous
  Country: US (occurrence: None)
  Receive Date: 20250613
  Receipt Date: 20250613
  Transmission Date: 20250716
  Serious: Yes (unspecified)
  Sender: FDA-CTU
  Company Number: None

PATIENT
  Age: 73 Year
  Sex: Female
  Weight: 63.5 kg

DRUGS (1)
  1. AMBIEN [Suspect]
     Active Substance: ZOLPIDEM TARTRATE
     Route: 048
     Dates: start: 20241201, end: 20250523

REACTIONS (3)
  - Abnormal sleep-related event [None]
  - Sleep-related eating disorder [None]
  - Therapy cessation [None]

NARRATIVE: CASE EVENT DATE: 20250523
